FAERS Safety Report 7668285-6 (Version None)
Quarter: 2011Q3

REPORT INFORMATION
  Report Type: 
  Country: None (occurrence: None)
  Receive Date: 20110808
  Receipt Date: 20110802
  Transmission Date: 20111222
  Serious: Yes (Hospitalization, Disabling, Other)
  Sender: FDA-Public Use
  Company Number: US-PFIZER INC-2009221737

PATIENT
  Sex: Female
  Weight: 88 kg

DRUGS (12)
  1. CHANTIX [Suspect]
     Dosage: UNK
     Dates: start: 20110101
  2. NEXIUM [Concomitant]
     Dosage: UNK
  3. ZOLOFT [Concomitant]
     Dosage: UNK
  4. REGLAN [Concomitant]
     Dosage: UNK
  5. PERCOCET [Concomitant]
     Indication: PAIN
     Dosage: UNK
  6. XANAX [Concomitant]
     Dosage: UNK
  7. LOTENSIN [Concomitant]
     Dosage: UNK
  8. LASIX [Concomitant]
     Dosage: UNK
  9. TRAZODONE [Concomitant]
     Dosage: UNK
  10. CHANTIX [Suspect]
     Indication: SMOKING CESSATION THERAPY
     Dosage: UNK
     Dates: start: 20090525
  11. WELLBUTRIN [Concomitant]
     Dosage: UNK
  12. CHANTIX [Suspect]
     Dosage: UNK

REACTIONS (5)
  - ARTHROPATHY [None]
  - POST PROCEDURAL COMPLICATION [None]
  - PNEUMONIA [None]
  - INFLUENZA [None]
  - HYPERTENSION [None]
